FAERS Safety Report 13290285 (Version 1)
Quarter: 2017Q1

REPORT INFORMATION
  Report Type: Spontaneous
  Country: PE (occurrence: PE)
  Receive Date: 20170302
  Receipt Date: 20170302
  Transmission Date: 20170428
  Serious: Yes (Other)
  Sender: FDA-Public Use
  Company Number: PE-PFIZER INC-2017019401

PATIENT
  Age: 76 Year
  Sex: Female

DRUGS (2)
  1. XALATAN [Suspect]
     Active Substance: LATANOPROST
     Dosage: 1 GTT (ON THE RIGHT EYE), 1X/DAY (AT NIGHTS)
     Route: 047
     Dates: start: 2009
  2. KRYTANTEK [Suspect]
     Active Substance: BRIMONIDINE TARTRATE\DORZOLAMIDE HYDROCHLORIDE\TIMOLOL MALEATE
     Dosage: 1 GTT, 2X/DAY (IN THE MORNING AND AT NIGHT)
     Route: 047

REACTIONS (2)
  - Cataract [Unknown]
  - Glaucoma [Unknown]
